FAERS Safety Report 6025485-9 (Version None)
Quarter: 2008Q4

REPORT INFORMATION
  Report Type: 
  Country: None (occurrence: None)
  Receive Date: 20081224
  Receipt Date: 20081203
  Transmission Date: 20090506
  Serious: Yes (Hospitalization)
  Sender: FDA-Public Use
  Company Number: 0311

PATIENT
  Age: 52 Year
  Sex: Male

DRUGS (3)
  1. INDOMETHACIN [Suspect]
     Dosage: PO, 2 TABLETS PO
     Route: 048
     Dates: start: 20081101, end: 20081101
  2. INDOMETHACIN [Suspect]
     Dosage: PO, 2 TABLETS PO
     Route: 048
     Dates: start: 20081101, end: 20081101
  3. INDOMETHACIN [Suspect]
     Dosage: PO, 2 TABLETS PO
     Route: 048
     Dates: start: 20081103

REACTIONS (3)
  - DIARRHOEA [None]
  - HAEMATOCHEZIA [None]
  - PYREXIA [None]
